FAERS Safety Report 7436031-7 (Version None)
Quarter: 2011Q2

REPORT INFORMATION
  Report Type: 
  Country: None (occurrence: None)
  Receive Date: 20110425
  Receipt Date: 20110405
  Transmission Date: 20111010
  Serious: Yes (Hospitalization, Other)
  Sender: FDA-Public Use
  Company Number: US-BAYER-200834050NA

PATIENT
  Age: 61 Year
  Sex: Male
  Weight: 105.67 kg

DRUGS (13)
  1. LOVENOX [Concomitant]
     Dosage: 1 MG/KG
     Route: 058
     Dates: start: 20040822, end: 20040822
  2. TRASYLOL [Suspect]
     Indication: CORONARY ARTERY BYPASS
     Dosage: 1ML TEST, 200 ML PRIME, 400 ML THEN 50ML/HR INFUSION
     Route: 042
     Dates: start: 20040824, end: 20040824
  3. PLATELETS [Concomitant]
     Dosage: 2 U, UNK
     Dates: start: 20040824
  4. RED BLOOD CELLS [Concomitant]
     Dosage: 2 U, UNK
     Dates: start: 20040824
  5. HEPARIN [Concomitant]
     Dosage: UNK
     Route: 042
     Dates: start: 20040823, end: 20040828
  6. FRESH FROZEN PLASMA [Concomitant]
     Dosage: 4 U, UNK
     Dates: start: 20040824
  7. NORVASC [Concomitant]
     Dosage: 10 MG, QD
     Route: 048
  8. LEVAQUIN [Concomitant]
     Dosage: 500 MG, UNK
     Route: 042
     Dates: start: 20040823
  9. HEPARIN [Concomitant]
     Dosage: 55000 U, UNK
     Dates: start: 20040824, end: 20040829
  10. LOPRESSOR [Concomitant]
     Dosage: 25 MG, UNK
     Route: 048
     Dates: start: 20040822
  11. NATRECOR [Concomitant]
     Dosage: 160 LOAD
     Dates: start: 20040824, end: 20040826
  12. AMIODARONE [Concomitant]
     Dosage: UNK
     Dates: start: 20040822, end: 20040905
  13. PROTAMINE SULFATE [Concomitant]
     Dosage: 1100 MG, UNK
     Dates: start: 20040824, end: 20040824

REACTIONS (13)
  - INJURY [None]
  - UNEVALUABLE EVENT [None]
  - NERVOUSNESS [None]
  - ANHEDONIA [None]
  - FEAR OF DEATH [None]
  - RENAL FAILURE [None]
  - ANXIETY [None]
  - PNEUMONIA [None]
  - AMNESIA [None]
  - DEPRESSION [None]
  - WEIGHT DECREASED [None]
  - PAIN [None]
  - EMOTIONAL DISTRESS [None]
